FAERS Safety Report 6570271-4 (Version None)
Quarter: 2010Q1

REPORT INFORMATION
  Report Type: 
  Country: None (occurrence: None)
  Receive Date: 20100204
  Receipt Date: 20100126
  Transmission Date: 20100710
  Serious: Yes (Hospitalization)
  Sender: FDA-Public Use
  Company Number: IT-PFIZER INC-2010011575

PATIENT
  Age: 56 Year
  Sex: Male

DRUGS (3)
  1. ARACYTIN [Suspect]
     Indication: ACUTE MYELOID LEUKAEMIA
     Dosage: 360 MG, X/DAY
     Route: 042
     Dates: start: 20090916, end: 20090922
  2. ZAVEDOS [Suspect]
     Indication: ACUTE MYELOID LEUKAEMIA
     Dosage: 22 MG, X/DAY
     Route: 042
     Dates: start: 20090916, end: 20090918
  3. ETOPOSIDE [Suspect]
     Indication: ACUTE MYELOID LEUKAEMIA
     Dosage: 180 MG, X/DAY
     Route: 042
     Dates: start: 20090916, end: 20090920

REACTIONS (4)
  - DIARRHOEA [None]
  - GASTROINTESTINAL INFLAMMATION [None]
  - HYPERPYREXIA [None]
  - PLEURAL EFFUSION [None]
